FAERS Safety Report 6219792-4 (Version None)
Quarter: 2009Q2

REPORT INFORMATION
  Report Type: 
  Country: None (occurrence: None)
  Receive Date: 20090609
  Receipt Date: 20090602
  Transmission Date: 20091009
  Serious: Yes (Other)
  Sender: FDA-Public Use
  Company Number: B0577313A

PATIENT
  Age: 73 Year
  Sex: Male

DRUGS (7)
  1. PAROXETINE HCL [Suspect]
     Indication: DRUG USE FOR UNKNOWN INDICATION
     Dosage: 10MG PER DAY
     Route: 048
  2. DIANTALVIC [Concomitant]
     Route: 065
  3. IRBESARTAN [Concomitant]
     Dosage: 75MG UNKNOWN
     Route: 065
  4. ALDACTONE [Concomitant]
     Dosage: 25MG UNKNOWN
     Route: 065
  5. SOTALEX [Concomitant]
     Dosage: 80MG TWICE PER DAY
     Route: 065
  6. SINEMET [Concomitant]
     Indication: PARKINSON'S DISEASE
     Route: 065
  7. VERATRAN [Concomitant]
     Route: 065

REACTIONS (4)
  - ANXIETY [None]
  - BLOOD PRESSURE INCREASED [None]
  - RESTLESSNESS [None]
  - SEROTONIN SYNDROME [None]
